FAERS Safety Report 5011741-X (Version None)
Quarter: 2006Q2

REPORT INFORMATION
  Report Type: 
  Country: None (occurrence: None)
  Receive Date: 20060526
  Receipt Date: 20060516
  Transmission Date: 20061013
  Serious: Yes (Death, Other)
  Sender: FDA-Public Use
  Company Number: CH-JNJFOC-20060500812

PATIENT
  Sex: Female
  Weight: 58 kg

DRUGS (4)
  1. CAELYX [Suspect]
     Route: 042
  2. PREDNISONE TAB [Concomitant]
     Route: 048
  3. TAVEGYL [Concomitant]
     Indication: PROPHYLAXIS
     Route: 042
  4. MEPHAMESON [Concomitant]
     Indication: ANTIEMETIC SUPPORTIVE CARE
     Route: 042

REACTIONS (5)
  - ALVEOLITIS FIBROSING [None]
  - BREAST CANCER METASTATIC [None]
  - CARDIAC FAILURE CONGESTIVE [None]
  - PNEUMONITIS [None]
  - PULMONARY EMBOLISM [None]
